FAERS Safety Report 7766886-8 (Version None)
Quarter: 2011Q3

REPORT INFORMATION
  Report Type: 
  Country: None (occurrence: None)
  Receive Date: 20110922
  Receipt Date: 20110919
  Transmission Date: 20111222
  Serious: No
  Sender: FDA-Public Use
  Company Number: US-PFIZER INC-2011176119

PATIENT
  Age: 67 Year
  Sex: Male

DRUGS (13)
  1. TERAZOSIN [Concomitant]
     Dosage: 2 MG, 2X/DAY
  2. GABAPENTIN [Suspect]
     Dosage: 100 MG, 3X/DAY
     Dates: start: 20110101
  3. SIMVASTATIN [Concomitant]
     Dosage: 20 MG, DAILY
  4. OMEPRAZOLE [Concomitant]
     Dosage: 20 MG, DAILY
  5. LYRICA [Suspect]
     Dosage: 25 MG, UNK
     Dates: start: 20110701
  6. GABAPENTIN [Suspect]
     Indication: NEUROPATHY PERIPHERAL
     Dosage: UNK
     Dates: end: 20110101
  7. LYRICA [Suspect]
     Indication: NEUROPATHY PERIPHERAL
     Dosage: 25 MG, 2X/DAY
     Route: 048
     Dates: start: 20110701, end: 20110101
  8. LISINOPRIL [Concomitant]
     Dosage: 10 MG, 2X/DAY
  9. TEMAZEPAM [Concomitant]
     Dosage: 15 MG, DAILY
  10. ALLOPURINOL [Concomitant]
     Dosage: 100 MG, 2X/DAY
  11. CLONIDINE [Concomitant]
     Dosage: 0.1 MG, 2X/DAY
  12. COREG [Concomitant]
     Dosage: 3.125 MG, 2X/DAY
  13. WARFARIN [Concomitant]
     Dosage: 1 MG, DAILY

REACTIONS (7)
  - HYPERTENSION [None]
  - SENSATION OF HEAVINESS [None]
  - DIZZINESS [None]
  - PAIN IN EXTREMITY [None]
  - FEELING ABNORMAL [None]
  - DRUG INEFFECTIVE [None]
  - DISCOMFORT [None]
